FAERS Safety Report 18512672 (Version 1)
Quarter: 2020Q4

REPORT INFORMATION
  Report Type: Report from Study
  Country: US (occurrence: US)
  Receive Date: 20201117
  Receipt Date: 20201117
  Transmission Date: 20210114
  Serious: Yes (Other)
  Sender: FDA-Public Use
  Company Number: US-JNJFOC-20201113205

PATIENT
  Age: 50 Year
  Sex: Female

DRUGS (5)
  1. SPRAVATO [Suspect]
     Active Substance: ESKETAMINE
     Dosage: 84 MG, 9 TOTAL DOSES
     Dates: start: 20200911, end: 20201104
  2. LITHIUM. [Concomitant]
     Active Substance: LITHIUM
  3. ELAVIL [Concomitant]
     Active Substance: AMITRIPTYLINE HYDROCHLORIDE
  4. SPRAVATO [Suspect]
     Active Substance: ESKETAMINE
     Indication: DEPRESSION
     Dates: start: 20200901, end: 20200901
  5. VALIUM [Concomitant]
     Active Substance: DIAZEPAM

REACTIONS (6)
  - Thinking abnormal [Unknown]
  - Insomnia [Unknown]
  - Headache [Unknown]
  - Spinal operation [Unknown]
  - Anger [Unknown]
  - Dizziness [Unknown]

NARRATIVE: CASE EVENT DATE: 20201028
